FAERS Safety Report 23287664 (Version 1)
Quarter: 2023Q4

REPORT INFORMATION
  Report Type: Spontaneous
  Country: UY (occurrence: UY)
  Receive Date: 20231212
  Receipt Date: 20231212
  Transmission Date: 20240109
  Serious: No
  Sender: FDA-Public Use
  Company Number: UY-PFIZER INC-PV202300191730

PATIENT
  Age: 11 Year
  Sex: Male

DRUGS (2)
  1. GENOTROPIN [Suspect]
     Active Substance: SOMATROPIN
     Indication: Short stature
     Dosage: 1 TO 1.4MG 6 TIMES PER WEEK
     Dates: start: 20121115
  2. GENOTROPIN [Suspect]
     Active Substance: SOMATROPIN
     Dosage: 1.2MG 6 TIMES PER WEEK

REACTIONS (2)
  - Injection site bruising [Not Recovered/Not Resolved]
  - Needle issue [Not Recovered/Not Resolved]
